FAERS Safety Report 4479572-7 (Version None)
Quarter: 2004Q4

REPORT INFORMATION
  Report Type: 
  Country: None (occurrence: None)
  Receive Date: 20041015
  Receipt Date: 20041006
  Transmission Date: 20050328
  Serious: Yes (Hospitalization)
  Sender: FDA-Public Use
  Company Number: 001050

PATIENT
  Age: 71 Year
  Sex: Male
  Weight: 109.1 kg

DRUGS (18)
  1. ZEVALIN [Suspect]
     Indication: NON-HODGKIN'S LYMPHOMA
     Dosage: SEE IMAGE
     Route: 042
     Dates: start: 20040810, end: 20040810
  2. ZEVALIN [Suspect]
     Indication: NON-HODGKIN'S LYMPHOMA
     Dosage: SEE IMAGE
     Route: 042
     Dates: start: 20040810, end: 20040810
  3. ZEVALIN [Suspect]
     Indication: NON-HODGKIN'S LYMPHOMA
     Dosage: SEE IMAGE
     Route: 042
     Dates: start: 20040817, end: 20040817
  4. ZEVALIN [Suspect]
     Indication: NON-HODGKIN'S LYMPHOMA
     Dosage: SEE IMAGE
     Route: 042
     Dates: start: 20040817, end: 20040817
  5. ASPIRIN [Concomitant]
  6. PACERONE [Concomitant]
  7. LISINOPRIL [Concomitant]
  8. NORVASC [Concomitant]
  9. ALLOPURINOL [Concomitant]
  10. DIAZEPAM [Concomitant]
  11. KLOR-CON [Concomitant]
  12. SYNTHROID [Concomitant]
  13. GLUCOSAMINE (GLUCOSAMINE) [Concomitant]
  14. NASONEX [Concomitant]
  15. VIAGRA [Concomitant]
  16. FUROSEMIDE [Concomitant]
  17. GUAIFENESIN (GUAIFENESIN) [Concomitant]
  18. LYSINE (LYSINE) [Concomitant]

REACTIONS (21)
  - ASTHENIA [None]
  - ATAXIA [None]
  - CATHETER RELATED INFECTION [None]
  - CEREBROVASCULAR ACCIDENT [None]
  - DEHYDRATION [None]
  - DISEASE RECURRENCE [None]
  - DIZZINESS [None]
  - DYSGRAPHIA [None]
  - FATIGUE [None]
  - GAIT DISTURBANCE [None]
  - HYPERTENSION [None]
  - HYPOKALAEMIA [None]
  - LACUNAR INFARCTION [None]
  - MITRAL VALVE INCOMPETENCE [None]
  - PLATELET COUNT DECREASED [None]
  - SINUSITIS [None]
  - SPEECH DISORDER [None]
  - THROMBOPHLEBITIS SEPTIC [None]
  - TRICUSPID VALVE INCOMPETENCE [None]
  - VENTRICULAR DYSFUNCTION [None]
  - WHITE BLOOD CELL COUNT DECREASED [None]
